FAERS Safety Report 14434657 (Version 3)
Quarter: 2018Q1

REPORT INFORMATION
  Report Type: Spontaneous
  Country: TW (occurrence: TW)
  Receive Date: 20180124
  Receipt Date: 20180215
  Transmission Date: 20180509
  Serious: Yes (Other)
  Sender: FDA-Public Use
  Company Number: TW-AMGEN-TWNSP2018010069

PATIENT
  Age: 57 Year
  Sex: Female

DRUGS (6)
  1. ENBREL [Suspect]
     Active Substance: ETANERCEPT
     Indication: RHEUMATOID ARTHRITIS
     Dosage: 25 MG, TWICE PER WEEK (BIW)
     Route: 058
     Dates: start: 20120628
  2. ENBREL [Suspect]
     Active Substance: ETANERCEPT
     Dosage: 4 DF (25MG/DF), EVERY 3 MONTHS
     Route: 058
     Dates: start: 20180209
  3. SALAZINE [Concomitant]
     Active Substance: SULFASALAZINE
     Indication: RHEUMATOID ARTHRITIS
     Dosage: 2 G, DAILY
  4. ENBREL [Suspect]
     Active Substance: ETANERCEPT
     Dosage: 4 DF (25MG/DF), EVERY 3 MONTHS
     Route: 058
     Dates: start: 20171015, end: 20180120
  5. GENIQUIN [Concomitant]
     Indication: RHEUMATOID ARTHRITIS
     Dosage: 200 MG, DAILY
  6. ARHEUMA [Concomitant]
     Indication: RHEUMATOID ARTHRITIS
     Dosage: 20 MG, DAILY

REACTIONS (3)
  - Product use issue [Unknown]
  - Cellulitis [Recovered/Resolved]
  - Stress fracture [Unknown]

NARRATIVE: CASE EVENT DATE: 201708
